FAERS Safety Report 25483849 (Version 1)
Quarter: 2025Q2

REPORT INFORMATION
  Report Type: Report from Study
  Country: ZA (occurrence: ZA)
  Receive Date: 20250626
  Receipt Date: 20250626
  Transmission Date: 20250717
  Serious: Yes (Hospitalization)
  Sender: TEVA
  Company Number: ZA-TEVA-VS-3343404

PATIENT
  Age: 51 Year
  Sex: Female
  Weight: 62 kg

DRUGS (7)
  1. FINGOLIMOD HYDROCHLORIDE [Suspect]
     Active Substance: FINGOLIMOD HYDROCHLORIDE
     Indication: Multiple sclerosis
     Route: 048
     Dates: start: 20231206
  2. ESTRADIOL HEMIHYDRATE\NORETHINDRONE ACETATE [Concomitant]
     Active Substance: ESTRADIOL HEMIHYDRATE\NORETHINDRONE ACETATE
     Indication: Hormone replacement therapy
  3. DULOXETINE HYDROCHLORIDE [Concomitant]
     Active Substance: DULOXETINE HYDROCHLORIDE
     Indication: Depression
     Route: 048
  4. Allerway mane and Allecet nocte [Concomitant]
     Indication: Chronic sinusitis
     Dates: start: 2025
  5. Stellar active-folate [Concomitant]
     Indication: Product used for unknown indication
     Dates: start: 2025
  6. ProbiFlora [Concomitant]
     Indication: Product used for unknown indication
     Dates: start: 2025
  7. ATORVASTATIN [Concomitant]
     Active Substance: ATORVASTATIN
     Indication: Dyslipidaemia
     Dates: start: 2025

REACTIONS (6)
  - Amnesia [Recovered/Resolved]
  - Blood pressure increased [Recovered/Resolved]
  - Blood glucose increased [Recovered/Resolved]
  - Disorientation [Recovered/Resolved]
  - Speech disorder developmental [Recovering/Resolving]
  - White blood cell count decreased [Recovering/Resolving]

NARRATIVE: CASE EVENT DATE: 20250101
